FAERS Safety Report 10780750 (Version 1)
Quarter: 2015Q1

REPORT INFORMATION
  Report Type: Spontaneous
  Country: US (occurrence: US)
  Receive Date: 20150210
  Receipt Date: 20150210
  Transmission Date: 20150721
  Serious: No
  Sender: FDA-Public Use
  Company Number: US-GLAXOSMITHKLINE-A1054586A

PATIENT

DRUGS (8)
  1. OMEPRAZOLE. [Concomitant]
     Active Substance: OMEPRAZOLE
  2. EQUATE NICOTINE [Suspect]
     Active Substance: NICOTINE
     Indication: EX-TOBACCO USER
     Dates: start: 20131128, end: 20131205
  3. LACTOBACILLUS [Concomitant]
     Active Substance: LACTOBACILLUS ACIDOPHILUS
  4. IBUPROFEN. [Concomitant]
     Active Substance: IBUPROFEN
  5. UNSPECIFIED MEDICATION [Concomitant]
     Active Substance: UNSPECIFIED INGREDIENT
  6. RESPACAL [Concomitant]
  7. UNSPECIFIED MEDICATION [Concomitant]
     Active Substance: UNSPECIFIED INGREDIENT
  8. LORAZEPAM. [Concomitant]
     Active Substance: LORAZEPAM

REACTIONS (4)
  - Malaise [Not Recovered/Not Resolved]
  - Application site rash [Not Recovered/Not Resolved]
  - Cardiac disorder [Not Recovered/Not Resolved]
  - Headache [Not Recovered/Not Resolved]

NARRATIVE: CASE EVENT DATE: 201312
